FAERS Safety Report 21939643 (Version 1)
Quarter: 2023Q1

REPORT INFORMATION
  Report Type: Report from Study
  Country: US (occurrence: US)
  Receive Date: 20230201
  Receipt Date: 20230201
  Transmission Date: 20230418
  Serious: No
  Sender: FDA-Public Use
  Company Number: US-EXELIXIS-CABO-22048362

PATIENT
  Age: 55 Year
  Sex: Male

DRUGS (2)
  1. CABOMETYX [Suspect]
     Active Substance: CABOZANTINIB S-MALATE
     Indication: Renal cell carcinoma
     Dosage: 40 MG, QD
     Dates: start: 20220101
  2. CABOMETYX [Suspect]
     Active Substance: CABOZANTINIB S-MALATE
     Dosage: 40 MG, QD

REACTIONS (23)
  - Increased appetite [Recovering/Resolving]
  - Glossitis [Not Recovered/Not Resolved]
  - Skin exfoliation [Unknown]
  - Hyperkeratosis [Recovered/Resolved]
  - Flatulence [Not Recovered/Not Resolved]
  - Otorrhoea [Recovered/Resolved]
  - Erythema [Recovered/Resolved]
  - Acne [Recovered/Resolved]
  - Alopecia [Not Recovered/Not Resolved]
  - Pruritus [Unknown]
  - Pain [Recovered/Resolved]
  - Hair colour changes [Unknown]
  - Arthralgia [Recovered/Resolved]
  - Nausea [Not Recovered/Not Resolved]
  - Taste disorder [Not Recovered/Not Resolved]
  - Fatigue [Unknown]
  - Blood pressure increased [Not Recovered/Not Resolved]
  - Stomatitis [Unknown]
  - Cough [Unknown]
  - Diarrhoea [Unknown]
  - Constipation [Unknown]
  - Headache [Unknown]
  - Dysphonia [Unknown]

NARRATIVE: CASE EVENT DATE: 20220101
